APPROVED DRUG PRODUCT: NAPROXEN SODIUM
Active Ingredient: NAPROXEN SODIUM
Strength: EQ 250MG BASE
Dosage Form/Route: TABLET;ORAL
Application: A074480 | Product #002
Applicant: HIKMA PHARMACEUTICALS
Approved: Feb 18, 1998 | RLD: No | RS: No | Type: DISCN